FAERS Safety Report 9709071 (Version 1)
Quarter: 2013Q4

REPORT INFORMATION
  Report Type: Spontaneous
  Country: GB (occurrence: None)
  Receive Date: 20131122
  Receipt Date: 20131122
  Transmission Date: 20140711
  Serious: Yes (Other)
  Sender: FDA-Public Use
  Company Number: CL-536-2013

PATIENT
  Age: 67 Year
  Sex: Male

DRUGS (1)
  1. METRONIDAZOLE [Suspect]
     Indication: DYSENTERY
     Dosage: THERAPY DATES:  UNK TO UNK } 1 DAY

REACTIONS (1)
  - Drug eruption [None]
